FAERS Safety Report 17842964 (Version 5)
Quarter: 2025Q2

REPORT INFORMATION
  Report Type: Spontaneous
  Country: JP (occurrence: JP)
  Receive Date: 20200530
  Receipt Date: 20250409
  Transmission Date: 20250716
  Serious: Yes (Death, Other)
  Sender: AUROBINDO
  Company Number: JP-AUROBINDO-AUR-APL-2020-026367

PATIENT
  Age: 69 Year
  Sex: Male

DRUGS (3)
  1. FOLOTYN [Suspect]
     Active Substance: PRALATREXATE
     Indication: Cutaneous T-cell lymphoma
     Route: 042
     Dates: start: 20190510
  2. FOLOTYN [Suspect]
     Active Substance: PRALATREXATE
     Route: 042
     Dates: end: 20190924
  3. LEUCOVORIN [Concomitant]
     Active Substance: LEUCOVORIN\LEUCOVORIN CALCIUM
     Indication: Product used for unknown indication
     Route: 005

REACTIONS (4)
  - Acute kidney injury [Fatal]
  - Blood lactate dehydrogenase decreased [Unknown]
  - Neutrophil count decreased [Recovered/Resolved]
  - Stomatitis [Unknown]

NARRATIVE: CASE EVENT DATE: 20190513
